FAERS Safety Report 7681565-3 (Version None)
Quarter: 2011Q3

REPORT INFORMATION
  Report Type: 
  Country: None (occurrence: None)
  Receive Date: 20110812
  Receipt Date: 20110810
  Transmission Date: 20111222
  Serious: Yes (Death, Other)
  Sender: FDA-Public Use
  Company Number: PHFR2011GB01892

PATIENT
  Sex: Male
  Weight: 58.8 kg

DRUGS (5)
  1. CLOZAPINE [Suspect]
     Indication: SCHIZOPHRENIA
     Dosage: 75 MG, UNK
     Route: 048
     Dates: start: 20091108, end: 20110315
  2. CLOZAPINE [Suspect]
     Route: 048
     Dates: start: 20100112
  3. LITHIUM CARBONATE [Concomitant]
     Indication: MAJOR DEPRESSION
     Dosage: 200 MG, BID
     Route: 048
  4. CARBOCISTEINE [Concomitant]
     Dosage: 375 MG 2 TAB BD
  5. ZOPICLONE [Concomitant]
     Dosage: 7.5 MG/DAY
     Route: 048

REACTIONS (3)
  - RESPIRATORY DISORDER [None]
  - DEATH [None]
  - MALAISE [None]
